FAERS Safety Report 10867963 (Version 1)
Quarter: 2015Q1

REPORT INFORMATION
  Report Type: Report from Study
  Country: US (occurrence: US)
  Receive Date: 20150225
  Receipt Date: 20150225
  Transmission Date: 20150721
  Serious: Yes (Hospitalization)
  Sender: FDA-Public Use
  Company Number: US-ROCHE-1543162

PATIENT
  Age: 65 Year
  Sex: Female
  Weight: 80.97 kg

DRUGS (7)
  1. PERTUZUMAB [Suspect]
     Active Substance: PERTUZUMAB
     Dosage: CYCLE 1: 840MG OVER 60 MIN ON DAY 1
     Route: 042
  2. CARBOPLATIN. [Suspect]
     Active Substance: CARBOPLATIN
     Indication: BREAST CANCER
     Dosage: LAST DOSE ADMINISTERED DATE-19/JAN/2015?DOSE REDUCTION (1 DOSE LEVEL): CYCLES 3, 4, + 5 DUE TO DIARR
     Route: 042
     Dates: start: 20141027
  3. DOCETAXEL. [Suspect]
     Active Substance: DOCETAXEL
     Indication: BREAST CANCER
     Dosage: LAST DOSE ADMINISTERED DATE-19/JAN/2015?DOSE REDUCTION (1 DOSE LEVEL): CYCLES 3, 4, + 5 DUE TO DIARR
     Route: 042
     Dates: start: 20141027
  4. ARIMIDEX [Suspect]
     Active Substance: ANASTROZOLE
     Indication: BREAST CANCER
     Route: 048
     Dates: start: 20141027
  5. PERTUZUMAB [Suspect]
     Active Substance: PERTUZUMAB
     Indication: BREAST CANCER
     Dosage: LAST DOSE ADMINISTERED DATE-19/JAN/2015?CYCLE 2-6: DOSE OVER 30-60 MIN ON DAY 1
     Route: 042
     Dates: start: 20141027
  6. TRASTUZUMAB [Suspect]
     Active Substance: TRASTUZUMAB
     Indication: BREAST CANCER
     Dosage: CYCLE 2-6: 6MG/KG OVER 30-60 MIN ON DAY 1 (IT IS RECOMMENDED THAT ADJUVANT TRASTUZUMAB BE CONTINUED
     Route: 042
     Dates: start: 20141027
  7. TRASTUZUMAB [Suspect]
     Active Substance: TRASTUZUMAB
     Dosage: CYCLE 1: 8MG/KG OVER 90 MIN ON DAY 1
     Route: 042

REACTIONS (1)
  - Enterocolitis infectious [Unknown]

NARRATIVE: CASE EVENT DATE: 20150121
